FAERS Safety Report 8297222-9 (Version None)
Quarter: 2012Q2

REPORT INFORMATION
  Report Type: 
  Country: None (occurrence: None)
  Receive Date: 20120419
  Receipt Date: 20120413
  Transmission Date: 20120825
  Serious: Yes (Hospitalization)
  Sender: FDA-Public Use
  Company Number: US-BAYER-2011-091895

PATIENT
  Age: 17 Year
  Sex: Female
  Weight: 42 kg

DRUGS (4)
  1. CALCIUM CARBONATE [Concomitant]
     Dosage: UNK
     Dates: start: 20081006
  2. NEXIUM [Concomitant]
     Indication: GASTROOESOPHAGEAL REFLUX DISEASE
     Dosage: UNK
     Dates: start: 20080101
  3. YAZ [Suspect]
     Dosage: UNK
     Dates: start: 20070401, end: 20081001
  4. PRILOSEC [Concomitant]
     Dosage: UNK
     Dates: start: 20080723

REACTIONS (8)
  - GALLBLADDER DISORDER [None]
  - EMOTIONAL DISTRESS [None]
  - INJURY [None]
  - ANXIETY [None]
  - CHOLECYSTITIS [None]
  - PAIN [None]
  - ANHEDONIA [None]
  - GENERAL PHYSICAL HEALTH DETERIORATION [None]
